FAERS Safety Report 16461190 (Version 1)
Quarter: 2019Q2

REPORT INFORMATION
  Report Type: Spontaneous
  Country: US (occurrence: US)
  Receive Date: 20190620
  Receipt Date: 20190620
  Transmission Date: 20190711
  Serious: No
  Sender: FDA-Public Use
  Company Number: US-ANIPHARMA-2019-US-011027

PATIENT
  Age: 25 Year
  Sex: Female
  Weight: 68.04 kg

DRUGS (2)
  1. METOCLOPRAMIDE ORAL SOLUTION 16 OZ [Suspect]
     Active Substance: METOCLOPRAMIDE
     Indication: PRODUCT USED FOR UNKNOWN INDICATION
     Dosage: 5 MG  EVERY 4-6 HOURS
     Route: 048
     Dates: start: 20190612
  2. UNSPECIFIED INHALER [Concomitant]
     Active Substance: UNSPECIFIED INGREDIENT
     Dosage: AS NEEDED

REACTIONS (2)
  - Feeling hot [Unknown]
  - Crying [Unknown]

NARRATIVE: CASE EVENT DATE: 20190613
